FAERS Safety Report 8218094-4 (Version None)
Quarter: 2012Q1

REPORT INFORMATION
  Report Type: 
  Country: None (occurrence: None)
  Receive Date: 20120305
  Receipt Date: 20111128
  Transmission Date: 20120608
  Serious: No
  Sender: FDA-Public Use
  Company Number: 1000025752

PATIENT
  Age: 61 Year
  Sex: Female

DRUGS (9)
  1. XOPENEX (LEVOSALBUTAMOL HYDROCHLORIDE) [Concomitant]
  2. SPIRIVA [Concomitant]
  3. SINGULAIR [Concomitant]
  4. DALIRESP [Suspect]
     Indication: EMPHYSEMA
     Dosage: 500 MCG (500 MCG, 1 IN 1 D), ORAL
     Route: 048
     Dates: start: 20111122
  5. DALIRESP [Suspect]
     Indication: CHRONIC OBSTRUCTIVE PULMONARY DISEASE
     Dosage: 500 MCG (500 MCG, 1 IN 1 D), ORAL
     Route: 048
     Dates: start: 20111122
  6. ZEBETA [Concomitant]
  7. ADVAIR HFA [Concomitant]
  8. SYNTHROID [Concomitant]
  9. FOSAMAX [Concomitant]

REACTIONS (6)
  - INSOMNIA [None]
  - BACK PAIN [None]
  - DIARRHOEA [None]
  - HEADACHE [None]
  - NAUSEA [None]
  - DYSPNOEA [None]
